FAERS Safety Report 7243913-8 (Version None)
Quarter: 2011Q1

REPORT INFORMATION
  Report Type: 
  Country: None (occurrence: None)
  Receive Date: 20110125
  Receipt Date: 20110119
  Transmission Date: 20110831
  Serious: Yes (Other)
  Sender: FDA-Public Use
  Company Number: A0908742A

PATIENT

DRUGS (1)
  1. PAXIL [Suspect]
     Indication: DEPRESSION
     Route: 048
     Dates: start: 20020101

REACTIONS (10)
  - HYPOMANIA [None]
  - BANKRUPTCY [None]
  - DRUG INEFFECTIVE [None]
  - GAMBLING [None]
  - HYPOAESTHESIA [None]
  - ABNORMAL BEHAVIOUR [None]
  - TREMOR [None]
  - FEELING ABNORMAL [None]
  - PARAESTHESIA [None]
  - COGNITIVE DISORDER [None]
